FAERS Safety Report 5999488-4 (Version None)
Quarter: 2008Q4

REPORT INFORMATION
  Report Type: 
  Country: None (occurrence: None)
  Receive Date: 20081211
  Receipt Date: 20081008
  Transmission Date: 20090506
  Serious: Yes (Other)
  Sender: FDA-Public Use
  Company Number: 2008S1000446

PATIENT
  Sex: Female
  Weight: 61 kg

DRUGS (2)
  1. CUBICIN [Suspect]
     Indication: STAPHYLOCOCCAL BACTERAEMIA
     Dosage: 6 MG/KG;Q24H;
  2. MEROPENEM [Concomitant]

REACTIONS (2)
  - EOSINOPHILIA [None]
  - TUBULOINTERSTITIAL NEPHRITIS [None]
